FAERS Safety Report 22988777 (Version 2)
Quarter: 2023Q4

REPORT INFORMATION
  Report Type: Report from Study
  Country: US (occurrence: US)
  Receive Date: 20230926
  Receipt Date: 20231215
  Transmission Date: 20240110
  Serious: Yes (Other)
  Sender: FDA-Public Use
  Company Number: US-ABBVIE-5357577

PATIENT
  Sex: Female
  Weight: 92 kg

DRUGS (1)
  1. HUMIRA [Suspect]
     Active Substance: ADALIMUMAB
     Indication: Psoriasis
     Dosage: CITRATE FREE FORM STRENGTH: 40MG
     Route: 058

REACTIONS (6)
  - Blindness unilateral [Unknown]
  - Headache [Unknown]
  - Psoriatic arthropathy [Unknown]
  - Pain [Unknown]
  - Back disorder [Unknown]
  - Visual impairment [Unknown]
